FAERS Safety Report 25664028 (Version 1)
Quarter: 2025Q3

REPORT INFORMATION
  Report Type: Report from Study
  Country: US (occurrence: US)
  Receive Date: 20250811
  Receipt Date: 20250811
  Transmission Date: 20251021
  Serious: Yes (Other)
  Sender: ACADIA PHARMACEUTICALS
  Company Number: US-ACADIA PHARMACEUTICALS INC.-ACA-2025-PIM-008974

PATIENT
  Age: 76 Year
  Sex: Female

DRUGS (18)
  1. NUPLAZID [Suspect]
     Active Substance: PIMAVANSERIN TARTRATE
     Indication: Parkinson^s disease
     Dosage: 34 MILLIGRAM, QD
     Route: 048
     Dates: start: 20210922
  2. NUPLAZID [Suspect]
     Active Substance: PIMAVANSERIN TARTRATE
     Indication: Hallucination
     Dosage: 34 MILLIGRAM, QD
     Route: 048
     Dates: start: 202404
  3. RYTARY [Concomitant]
     Active Substance: CARBIDOPA\LEVODOPA
  4. MIDODRINE [Concomitant]
     Active Substance: MIDODRINE
  5. IBUPROFEN [Concomitant]
     Active Substance: IBUPROFEN
  6. LORAZEPAM [Concomitant]
     Active Substance: LORAZEPAM
  7. CLEARLAX [Concomitant]
     Active Substance: POLYETHYLENE GLYCOL 3350
  8. LACTULOSE [Concomitant]
     Active Substance: LACTULOSE
  9. VITAMIN D3 [Concomitant]
     Active Substance: CHOLECALCIFEROL
  10. MELATONIN [Concomitant]
     Active Substance: MELATONIN
  11. VITAMIN B12 [Concomitant]
     Active Substance: CYANOCOBALAMIN
  12. MEMANTINE [Concomitant]
     Active Substance: MEMANTINE
  13. LINZESS [Concomitant]
     Active Substance: LINACLOTIDE
  14. NOURIANZ [Concomitant]
     Active Substance: ISTRADEFYLLINE
  15. FLUDROCORTISONE [Concomitant]
     Active Substance: FLUDROCORTISONE
  16. ETHAMBUTOL [Concomitant]
     Active Substance: ETHAMBUTOL HYDROCHLORIDE
  17. RIFAMPIN [Concomitant]
     Active Substance: RIFAMPIN
  18. AZITHROMYCIN [Concomitant]
     Active Substance: AZITHROMYCIN

REACTIONS (2)
  - Hallucination [Not Recovered/Not Resolved]
  - Therapy interrupted [Not Recovered/Not Resolved]

NARRATIVE: CASE EVENT DATE: 20250804
